FAERS Safety Report 11014765 (Version 2)
Quarter: 2015Q2

REPORT INFORMATION
  Report Type: Spontaneous
  Country: US (occurrence: US)
  Receive Date: 20150412
  Receipt Date: 20150525
  Transmission Date: 20150821
  Serious: No
  Sender: FDA-Public Use
  Company Number: US-JNJFOC-20150115665

PATIENT
  Sex: Female
  Weight: 65.77 kg

DRUGS (8)
  1. VITAMIN D [Concomitant]
     Active Substance: CHOLECALCIFEROL
     Indication: VITAMIN D DEFICIENCY
     Dosage: ONCE A DAY
     Route: 048
     Dates: start: 2004
  2. TRAMADOL ER [Suspect]
     Active Substance: TRAMADOL HYDROCHLORIDE
     Indication: PAIN
     Dosage: 3 TIMES DAILY
     Route: 048
     Dates: end: 20141203
  3. METHOTREXATE [Concomitant]
     Active Substance: METHOTREXATE
     Indication: RHEUMATOID ARTHRITIS
     Dosage: ONCE A WEEK
     Route: 058
     Dates: start: 2004
  4. ATENOLOL. [Concomitant]
     Active Substance: ATENOLOL
     Indication: MITRAL VALVE PROLAPSE
     Dosage: ONCE A WEEK
     Route: 048
     Dates: start: 1990
  5. CALCIUM AND VITAMIN D [Concomitant]
     Active Substance: CALCIUM\VITAMIN D
     Indication: OSTEOPENIA
     Dosage: ONCE A DAY
     Route: 048
     Dates: start: 2002
  6. TRAMADOL ER [Suspect]
     Active Substance: TRAMADOL HYDROCHLORIDE
     Indication: PAIN
     Dosage: ONCE DAILY
     Route: 048
     Dates: end: 201412
  7. FOLIC ACID. [Concomitant]
     Active Substance: FOLIC ACID
     Dosage: ONCE A DAY
     Route: 048
     Dates: start: 2004
  8. ESTRADIOL. [Concomitant]
     Active Substance: ESTRADIOL
     Indication: MENOPAUSE
     Dosage: ONCE A WEEK
     Route: 048
     Dates: start: 1977

REACTIONS (1)
  - Drug effect decreased [Unknown]
